FAERS Safety Report 24947963 (Version 1)
Quarter: 2025Q1

REPORT INFORMATION
  Report Type: Spontaneous
  Country: JP (occurrence: JP)
  Receive Date: 20250210
  Receipt Date: 20250210
  Transmission Date: 20250408
  Serious: Yes (Death, Other)
  Sender: BRISTOL-MYERS SQUIBB COMPANY
  Company Number: JP-BRISTOL-MYERS SQUIBB COMPANY-2025-017319

PATIENT
  Age: 74 Year
  Sex: Male
  Weight: 58 kg

DRUGS (5)
  1. YERVOY [Suspect]
     Active Substance: IPILIMUMAB
     Indication: Squamous cell carcinoma of lung
     Route: 042
     Dates: start: 20240522, end: 20240925
  2. OPDIVO [Suspect]
     Active Substance: NIVOLUMAB
     Indication: Squamous cell carcinoma of lung
     Route: 042
     Dates: start: 20240522, end: 20240925
  3. EZETIMIBE [Concomitant]
     Active Substance: EZETIMIBE
     Indication: Product used for unknown indication
     Route: 048
  4. IRBESARTAN [Concomitant]
     Active Substance: IRBESARTAN
     Indication: Product used for unknown indication
     Route: 048
  5. LEVOTHYROXINE SODIUM [Concomitant]
     Active Substance: LEVOTHYROXINE SODIUM
     Indication: Product used for unknown indication
     Route: 048

REACTIONS (1)
  - Cerebral infarction [Fatal]

NARRATIVE: CASE EVENT DATE: 20241021
